FAERS Safety Report 4602547-1 (Version None)
Quarter: 2005Q1

REPORT INFORMATION
  Report Type: 
  Country: None (occurrence: None)
  Receive Date: 20050309
  Receipt Date: 20050304
  Transmission Date: 20050727
  Serious: Yes (Hospitalization)
  Sender: FDA-Public Use
  Company Number: PHBS2005CH03212

PATIENT
  Age: 26 Year
  Sex: Male

DRUGS (21)
  1. CERTICAN [Suspect]
     Indication: LUNG TRANSPLANT
     Dosage: 4.5 MG/D
     Route: 048
  2. TACROLIMUS [Suspect]
     Indication: LUNG TRANSPLANT
  3. NEXIUM [Concomitant]
     Dosage: 20 MG/D
     Route: 048
  4. CREON [Concomitant]
  5. HUMALOG [Concomitant]
     Route: 058
  6. VITAMIN A [Concomitant]
     Dosage: 50000 IU/D
     Route: 048
  7. SANDIMMUNE [Suspect]
     Indication: LUNG TRANSPLANT
     Dosage: 150 MG/D
     Route: 048
     Dates: start: 20050104, end: 20050107
  8. SANDIMMUNE [Suspect]
     Dosage: 200 MG/D
     Route: 048
     Dates: start: 20050108, end: 20050113
  9. SANDIMMUNE [Suspect]
     Dosage: 400 MG/D
     Route: 048
     Dates: start: 20050114, end: 20050119
  10. SANDIMMUNE [Suspect]
     Dosage: 200 MG/D
     Route: 048
     Dates: start: 20050122, end: 20050123
  11. SANDIMMUNE [Suspect]
     Dosage: 400 MG/D
     Route: 048
     Dates: start: 20050124, end: 20050127
  12. SANDIMMUNE [Suspect]
     Dosage: 600 MG/D
     Route: 048
     Dates: start: 20050128, end: 20050130
  13. SANDIMMUNE [Suspect]
     Dosage: 300 MG, TID
     Route: 048
     Dates: start: 20050131
  14. LEXOTANIL [Concomitant]
     Dosage: 1.5 MG/D
     Route: 048
  15. FERRUM HAUSMANN [Concomitant]
     Dosage: 1 CAP/D
     Route: 048
  16. FRAXIPARINE [Concomitant]
     Dosage: 2 DF/D
     Route: 058
  17. CALCIUM-SANDOZ [Concomitant]
     Dosage: 1000 MG/D
     Route: 048
  18. VALTREX [Concomitant]
     Dosage: 100 MG/D
     Route: 048
  19. PREDNISONE [Concomitant]
     Dosage: 7.5 MG/D
     Route: 065
  20. WELLVONE [Concomitant]
     Dosage: 750 MG/D
     Route: 048
  21. SANDIMMUNE [Concomitant]
     Indication: LUNG TRANSPLANT
     Route: 042
     Dates: start: 20050120, end: 20050121

REACTIONS (4)
  - ACNE [None]
  - DRUG INTERACTION [None]
  - DRUG LEVEL DECREASED [None]
  - MALABSORPTION [None]
